FAERS Safety Report 5692896-0 (Version None)
Quarter: 2008Q2

REPORT INFORMATION
  Report Type: 
  Country: None (occurrence: None)
  Receive Date: 20080326
  Receipt Date: 20071217
  Transmission Date: 20081010
  Serious: No
  Sender: FDA-Public Use
  Company Number: US-CVT-070189

PATIENT
  Sex: Male

DRUGS (2)
  1. RANEXA [Suspect]
     Indication: DRUG USE FOR UNKNOWN INDICATION
     Dosage: 1000 MG, QD IN AM, ORAL ; 500 MG, QD IN PM, ORAL
     Route: 048
     Dates: start: 20070101
  2. RANEXA [Suspect]
     Indication: DRUG USE FOR UNKNOWN INDICATION
     Dosage: 1000 MG, QD IN AM, ORAL ; 500 MG, QD IN PM, ORAL
     Route: 048
     Dates: start: 20070101

REACTIONS (1)
  - INSOMNIA [None]
